FAERS Safety Report 25237473 (Version 2)
Quarter: 2025Q2

REPORT INFORMATION
  Report Type: Report from Study
  Country: US (occurrence: US)
  Receive Date: 20250425
  Receipt Date: 20250502
  Transmission Date: 20250717
  Serious: Yes (Hospitalization, Other)
  Sender: ABBVIE
  Company Number: US-ABBVIE-6161843

PATIENT
  Age: 71 Year
  Sex: Female
  Weight: 106.59 kg

DRUGS (2)
  1. HUMIRA [Suspect]
     Active Substance: ADALIMUMAB
     Indication: Rheumatoid arthritis
     Dosage: CITRATE FREE?FORM STRENGTH: 40 MILLIGRAM
     Route: 058
     Dates: start: 20221021, end: 202412
  2. HUMIRA [Suspect]
     Active Substance: ADALIMUMAB
     Dosage: CITRATE FREE?FORM STRENGTH: 40 MILLIGRAM
     Route: 058
     Dates: start: 20250328

REACTIONS (8)
  - Back disorder [Recovered/Resolved]
  - Weight increased [Not Recovered/Not Resolved]
  - Nerve compression [Recovered/Resolved]
  - Pain [Recovered/Resolved]
  - Mobility decreased [Recovering/Resolving]
  - Infection [Recovered/Resolved]
  - Intervertebral disc protrusion [Recovered/Resolved]
  - Osteoarthritis [Unknown]

NARRATIVE: CASE EVENT DATE: 20250101
